FAERS Safety Report 9432213 (Version 1)
Quarter: 2013Q3

REPORT INFORMATION
  Report Type: Spontaneous
  Country: FR (occurrence: FR)
  Receive Date: 20130731
  Receipt Date: 20130731
  Transmission Date: 20140515
  Serious: Yes (Hospitalization, Other)
  Sender: FDA-Public Use
  Company Number: PHHY2013FR064751

PATIENT
  Sex: 0

DRUGS (11)
  1. CERTICAN [Suspect]
     Indication: RENAL TRANSPLANT
     Dosage: UNK
     Route: 048
     Dates: start: 20130206, end: 20130608
  2. LASILIX [Concomitant]
     Dosage: 120 MG, QD
     Route: 048
  3. CELLCEPT [Concomitant]
     Indication: IMMUNOSUPPRESSION
     Dosage: 500 MG, BID
     Route: 048
  4. IKOREL [Concomitant]
     Indication: CORONARY ARTERY DISEASE
     Dosage: 10 MG, QD
     Route: 048
  5. INEGY [Concomitant]
     Dosage: 20 MG, QD
     Route: 048
  6. TRIATEC [Concomitant]
     Dosage: 1.25 MG, QD
     Route: 048
  7. KARDEGIC [Concomitant]
     Dosage: UNK UKN, UNK
     Route: 048
  8. PLAVIX [Concomitant]
     Dosage: UNK UKN, UNK
     Route: 048
  9. INIPOMP [Concomitant]
     Dosage: UNK UKN, UNK
     Route: 048
  10. VISKEN [Concomitant]
     Dosage: 7.5 MG, QD
     Route: 048
  11. IMOVANE [Concomitant]
     Dosage: UNK UKN, UNK
     Route: 048

REACTIONS (12)
  - Renal failure acute [Recovering/Resolving]
  - Anuria [Recovering/Resolving]
  - Blood creatinine increased [Unknown]
  - Sepsis [Recovering/Resolving]
  - Immunosuppressant drug level increased [Recovering/Resolving]
  - Cardiac failure [Recovering/Resolving]
  - Pyelonephritis [Recovering/Resolving]
  - Thrombocytopenia [Recovering/Resolving]
  - Ischaemic cardiomyopathy [Unknown]
  - Atrial fibrillation [Unknown]
  - Overdose [Unknown]
  - Haemoglobin decreased [Unknown]
